FAERS Safety Report 12204114 (Version 2)
Quarter: 2016Q2

REPORT INFORMATION
  Report Type: Spontaneous
  Country: US (occurrence: US)
  Receive Date: 20160323
  Receipt Date: 20160414
  Transmission Date: 20160815
  Serious: No
  Sender: FDA-Public Use
  Company Number: US-PFIZER INC-2016123147

PATIENT
  Age: 67 Year
  Sex: Male
  Weight: 77.5 kg

DRUGS (3)
  1. DOXAZOSIN MESILATE [Suspect]
     Active Substance: DOXAZOSIN MESYLATE
     Indication: PROSTATOMEGALY
     Dosage: 8 MG, DAILY
     Route: 048
     Dates: start: 2007
  2. FINASTERIDE. [Concomitant]
     Active Substance: FINASTERIDE
     Dosage: UNK
     Dates: start: 2007, end: 20151126
  3. DOXAZOSIN MESILATE [Suspect]
     Active Substance: DOXAZOSIN MESYLATE
     Indication: PROSTATE CANCER

REACTIONS (1)
  - Drug ineffective [Not Recovered/Not Resolved]
